FAERS Safety Report 8290456-9 (Version None)
Quarter: 2012Q2

REPORT INFORMATION
  Report Type: 
  Country: None (occurrence: None)
  Receive Date: 20120413
  Receipt Date: 20120413
  Transmission Date: 20120825
  Serious: Yes (Life-Threatening)
  Sender: FDA-Public Use
  Company Number: None

PATIENT

DRUGS (1)
  1. DEXTROSE 5% AND SODIUM CHLORIDE 0.9% [Suspect]
     Indication: LIPOSUCTION
     Dosage: 500 MILLILITERS OTHER
     Route: 050
     Dates: start: 20120409, end: 20120409

REACTIONS (1)
  - HAEMORRHAGE [None]
